FAERS Safety Report 18190280 (Version 3)
Quarter: 2022Q4

REPORT INFORMATION
  Report Type: Spontaneous
  Country: US (occurrence: US)
  Receive Date: 20200825
  Receipt Date: 20221013
  Transmission Date: 20230113
  Serious: No
  Sender: FDA-Public Use
  Company Number: US-CELLTRION INC.-2019US027611

PATIENT

DRUGS (1)
  1. INFLECTRA [Suspect]
     Active Substance: INFLIXIMAB-DYYB
     Indication: Crohn^s disease
     Dosage: 700 MG, MAINTENANCE DOSAGE
     Route: 065
     Dates: start: 201804

REACTIONS (6)
  - Haemoglobin abnormal [Unknown]
  - Therapy interrupted [Unknown]
  - Foreign travel [Unknown]
  - Product dose omission issue [Unknown]
  - Overdose [Unknown]
  - Treatment delayed [Unknown]

NARRATIVE: CASE EVENT DATE: 20191123
